FAERS Safety Report 4721761-8 (Version None)
Quarter: 2005Q3

REPORT INFORMATION
  Report Type: 
  Country: None (occurrence: None)
  Receive Date: 20050721
  Receipt Date: 20050401
  Transmission Date: 20060218
  Serious: Yes (Hospitalization)
  Sender: FDA-Public Use
  Company Number: US-BRISTOL-MYERS SQUIBB COMPANY-12918728

PATIENT
  Age: 77 Year
  Sex: Female
  Weight: 90 kg

DRUGS (10)
  1. COUMADIN [Suspect]
     Indication: PROPHYLAXIS
     Route: 048
     Dates: end: 20050324
  2. JANTOVEN [Suspect]
     Indication: PROPHYLAXIS
     Route: 048
     Dates: start: 20050307, end: 20050324
  3. LISINOPRIL [Concomitant]
  4. FUROSEMIDE [Concomitant]
     Dates: start: 20050303
  5. GLYBURIDE [Concomitant]
  6. FERROUS SULFATE TAB [Concomitant]
  7. LIPITOR [Concomitant]
  8. TRICOR [Concomitant]
  9. DIGOXIN [Concomitant]
  10. COREG [Concomitant]
     Dates: start: 20050303

REACTIONS (2)
  - GASTROINTESTINAL HAEMORRHAGE [None]
  - INTERNATIONAL NORMALISED RATIO FLUCTUATION [None]
